FAERS Safety Report 9025289 (Version 1)
Quarter: 2013Q1

REPORT INFORMATION
  Report Type: Spontaneous
  Country: NL (occurrence: NL)
  Receive Date: 20130122
  Receipt Date: 20130122
  Transmission Date: 20140127
  Serious: Yes (Life-Threatening, Hospitalization)
  Sender: FDA-Public Use
  Company Number: NL-009507513-1301NLD008220

PATIENT
  Age: 69 Year
  Sex: Male

DRUGS (6)
  1. SIMVASTATIN [Suspect]
     Indication: AORTIC ANEURYSM
     Dosage: 40 MG, QD
     Route: 048
     Dates: start: 20121204
  2. ASCAL BRISPER [Suspect]
     Indication: AORTIC DILATATION
     Dosage: 100 MG, QD
     Route: 048
     Dates: start: 20121203
  3. OMEPRAZOLE [Suspect]
     Indication: PROPHYLAXIS AGAINST GASTROINTESTINAL ULCER
     Dosage: 40 MG, QD
     Route: 048
     Dates: start: 20121125, end: 201212
  4. BISOPROLOL [Suspect]
     Indication: AORTIC DILATATION
     Dosage: 2.5 MG, QD
     Route: 048
     Dates: start: 20121204
  5. NORMACOL (STERCULIA) [Concomitant]
     Dosage: 1 DF, QD
     Route: 048
  6. OXAZEPAM [Concomitant]
     Dosage: 3 MG, TID
     Route: 048
     Dates: end: 20121218

REACTIONS (1)
  - Drug hypersensitivity [Recovered/Resolved]
